FAERS Safety Report 20680514 (Version 1)
Quarter: 2022Q2

REPORT INFORMATION
  Report Type: Spontaneous
  Country: US (occurrence: None)
  Receive Date: 20220405
  Receipt Date: 20220405
  Transmission Date: 20220721
  Serious: Yes (unspecified)
  Sender: FDA-Public Use
  Company Number: None

PATIENT
  Age: 24 Year
  Sex: Male
  Weight: 102 kg

DRUGS (1)
  1. CHLORTHALIDONE [Suspect]
     Active Substance: CHLORTHALIDONE
     Indication: Hypertension
     Dosage: FREQUENCY : DAILY;?
     Route: 048
     Dates: start: 20210603, end: 20210706

REACTIONS (6)
  - Hyponatraemia [None]
  - Sinus bradycardia [None]
  - Atrioventricular block first degree [None]
  - Hypertension [None]
  - Orthostatic hypotension [None]
  - Transcription medication error [None]

NARRATIVE: CASE EVENT DATE: 20210706
